FAERS Safety Report 13054615 (Version 2)
Quarter: 2022Q1

REPORT INFORMATION
  Report Type: Report from Study
  Country: US (occurrence: US)
  Receive Date: 20161222
  Receipt Date: 20220228
  Transmission Date: 20220423
  Serious: Yes (Congenital Anomaly, Other)
  Sender: FDA-Public Use
  Company Number: PHHY2014US147790

PATIENT
  Sex: Female
  Weight: 3.17 kg

DRUGS (4)
  1. GILENYA [Suspect]
     Active Substance: FINGOLIMOD HYDROCHLORIDE
     Indication: Foetal exposure during pregnancy
     Dosage: MATERNAL DOSE: 0.5 MG DAILY
     Route: 064
  2. VITAMINS [Concomitant]
     Active Substance: VITAMINS
     Indication: Foetal exposure during pregnancy
     Dosage: MATERNAL DOSE: UNKNOWN
     Route: 064
  3. VITAMINS [Concomitant]
     Active Substance: VITAMINS
     Indication: Foetal exposure during pregnancy
     Dosage: MATERNAL DOSE: QD
     Route: 064
  4. XANAX [Concomitant]
     Active Substance: ALPRAZOLAM
     Indication: Foetal exposure during pregnancy
     Dosage: MATERNAL DOSE: UNKNOWN
     Route: 064

REACTIONS (2)
  - Torticollis [Unknown]
  - Foetal exposure during pregnancy [Unknown]
